FAERS Safety Report 8496991-2 (Version None)
Quarter: 2012Q3

REPORT INFORMATION
  Report Type: 
  Country: None (occurrence: None)
  Receive Date: 20120709
  Receipt Date: 20120601
  Transmission Date: 20120928
  Serious: No
  Sender: FDA-Public Use
  Company Number: US-AMGEN-USASP2012034500

PATIENT
  Age: 43 Year
  Sex: Female

DRUGS (2)
  1. TREXALL [Concomitant]
     Dosage: 10 MG, UNK
     Dates: start: 20111101
  2. ENBREL [Suspect]
     Indication: RHEUMATOID ARTHRITIS
     Dosage: 50 MG, QWK
     Dates: start: 20120524

REACTIONS (3)
  - DRUG INEFFECTIVE [None]
  - STRESS [None]
  - INJECTION SITE PAIN [None]
